FAERS Safety Report 22130100 (Version 1)
Quarter: 2023Q1

REPORT INFORMATION
  Report Type: Spontaneous
  Country: CA (occurrence: CA)
  Receive Date: 20230323
  Receipt Date: 20230323
  Transmission Date: 20230417
  Serious: Yes (Other)
  Sender: FDA-Public Use
  Company Number: CA-002147023-NVSC2023CA062923

PATIENT
  Age: 6 Year
  Sex: Male

DRUGS (4)
  1. TOPOTECAN HYDROCHLORIDE [Suspect]
     Active Substance: TOPOTECAN HYDROCHLORIDE
     Indication: Neuroblastoma recurrent
     Dosage: UNK
     Route: 065
  2. ETOPOSIDE [Suspect]
     Active Substance: ETOPOSIDE
     Indication: Neuroblastoma recurrent
     Dosage: UNK
     Route: 048
  3. CYCLOPHOSPHAMIDE [Suspect]
     Active Substance: CYCLOPHOSPHAMIDE
     Indication: Neuroblastoma recurrent
     Dosage: UNK
     Route: 065
  4. UNITUXIN [Suspect]
     Active Substance: DINUTUXIMAB
     Indication: Neuroblastoma recurrent
     Dosage: UNK (SINGLE USE VIAL/ SOLUTION)
     Route: 041

REACTIONS (8)
  - Diarrhoea [Not Recovered/Not Resolved]
  - Gastrointestinal toxicity [Not Recovered/Not Resolved]
  - Immunosuppression [Not Recovered/Not Resolved]
  - Neoplasm progression [Not Recovered/Not Resolved]
  - Metastases to lung [Not Recovered/Not Resolved]
  - Neuroblastoma [Not Recovered/Not Resolved]
  - Post transplant lymphoproliferative disorder [Not Recovered/Not Resolved]
  - Off label use [Not Recovered/Not Resolved]
